FAERS Safety Report 9030184 (Version 7)
Quarter: 2013Q3

REPORT INFORMATION
  Report Type: Spontaneous
  Country: BE (occurrence: BE)
  Receive Date: 20130125
  Receipt Date: 20130712
  Transmission Date: 20140515
  Serious: Yes (Hospitalization)
  Sender: FDA-Public Use
  Company Number: BE-009507513-1211BEL012762

PATIENT
  Age: 51 Year
  Sex: Male

DRUGS (9)
  1. REBETOL [Suspect]
     Indication: HEPATITIS C
     Dosage: TOTAL DAILY DOSE 1000 MG
     Route: 048
     Dates: start: 20121105, end: 20121111
  2. REBETOL [Suspect]
     Dosage: TOTAL DAILY DOSE 800 MG
     Route: 048
     Dates: start: 20121112, end: 20130113
  3. PEGINTRON [Suspect]
     Indication: HEPATITIS C
     Dosage: 100 MICROGRAM, QW
     Route: 042
     Dates: start: 20121105, end: 20130113
  4. PEGINTRON [Suspect]
     Dosage: 60 MICROGRAM, QW
     Route: 042
     Dates: start: 20130114, end: 20130415
  5. VICTRELIS [Suspect]
     Indication: HEPATITIS C
     Dosage: TID, TOTAL DAILY DOSE 2400 MG
     Route: 048
     Dates: start: 20121205, end: 20130415
  6. NOVORAPID [Concomitant]
     Dosage: UNK, TID
  7. LANTUS [Concomitant]
     Dosage: UNK, QPM
  8. ALDACTONE TABLETS [Concomitant]
  9. INDERAL [Concomitant]

REACTIONS (9)
  - Fall [Recovered/Resolved]
  - Pruritus [Recovered/Resolved]
  - Rash [Recovered/Resolved]
  - Blood test abnormal [Unknown]
  - Blood disorder [Unknown]
  - Varices oesophageal [Unknown]
  - Anaemia [Unknown]
  - Hypoglycaemia [Unknown]
  - Transfusion [Unknown]
